FAERS Safety Report 4852520-3 (Version None)
Quarter: 2005Q4

REPORT INFORMATION
  Report Type: 
  Country: None (occurrence: None)
  Receive Date: 20051213
  Receipt Date: 20051202
  Transmission Date: 20060501
  Serious: Yes (Other)
  Sender: FDA-Public Use
  Company Number: PHBS2005IN18016

PATIENT
  Age: 66 Year
  Sex: Male

DRUGS (3)
  1. ZOMETA [Suspect]
     Indication: MULTIPLE MYELOMA
     Route: 042
  2. MELPHALAN [Concomitant]
  3. PREDNISONE [Concomitant]

REACTIONS (1)
  - OSTEONECROSIS [None]
